FAERS Safety Report 23847277 (Version 1)
Quarter: 2024Q2

REPORT INFORMATION
  Report Type: Spontaneous
  Country: US (occurrence: US)
  Receive Date: 20240513
  Receipt Date: 20240513
  Transmission Date: 20240716
  Serious: Yes (Other)
  Sender: FDA-Public Use
  Company Number: US-009507513-2405USA002295

PATIENT
  Sex: Male

DRUGS (1)
  1. KEYTRUDA [Suspect]
     Active Substance: PEMBROLIZUMAB
     Indication: Bladder cancer
     Dosage: 200 MILLIGRAM, Q3W (REPORTED AS EVERY 21 DAYS)
     Route: 042
     Dates: start: 202402

REACTIONS (3)
  - Nephritis [Unknown]
  - Blood creatinine increased [Unknown]
  - Single functional kidney [Unknown]

NARRATIVE: CASE EVENT DATE: 20240101
